FAERS Safety Report 9505321 (Version 1)
Quarter: 2013Q1

REPORT INFORMATION
  Report Type: Spontaneous
  Country: US (occurrence: None)
  Receive Date: 20130220
  Receipt Date: 20130220
  Transmission Date: 20140127
  Serious: No
  Sender: FDA-Public Use
  Company Number: 1000040326

PATIENT
  Age: 22 Year
  Sex: Female

DRUGS (3)
  1. VIIBRYD [Suspect]
     Indication: DEPRESSION
     Dosage: 10 MG (10 MG, 1 IN 1 D)
     Route: 048
     Dates: start: 201210, end: 2012
  2. VIIBRYD [Suspect]
     Dosage: 10 MG (10 MG, 1 IN 1 D)
     Route: 048
     Dates: start: 201210, end: 2012
  3. XANAX (ALPRAZOLAM) (ALPRAZOLAM) [Concomitant]

REACTIONS (1)
  - Abnormal dreams [None]
